FAERS Safety Report 5404730-4 (Version None)
Quarter: 2007Q3

REPORT INFORMATION
  Report Type: 
  Country: None (occurrence: None)
  Receive Date: 20070801
  Receipt Date: 20070717
  Transmission Date: 20080115
  Serious: Yes (Other)
  Sender: FDA-Public Use
  Company Number: DSJ-2007-03505

PATIENT
  Age: 65 Year
  Sex: Male
  Weight: 59.5 kg

DRUGS (3)
  1. OLMETEC [Suspect]
     Indication: ESSENTIAL HYPERTENSION
     Dosage: 10 MG (10 MG, 1 IN 1 D), PER ORAL
     Route: 048
     Dates: start: 20060222
  2. ASPIRIN [Concomitant]
  3. DEPAS                (ETIZOLAM) [Concomitant]

REACTIONS (3)
  - CEREBRAL INFARCTION [None]
  - DIZZINESS [None]
  - LACUNAR INFARCTION [None]
